FAERS Safety Report 7762509-2 (Version None)
Quarter: 2011Q3

REPORT INFORMATION
  Report Type: 
  Country: None (occurrence: None)
  Receive Date: 20110920
  Receipt Date: 20110906
  Transmission Date: 20111222
  Serious: No
  Sender: FDA-Public Use
  Company Number: US-MYLANLABS-2011S1017037

PATIENT
  Age: 65 Year
  Sex: Female

DRUGS (4)
  1. CLONAZEPAM [Concomitant]
  2. THYROID HORMONES [Concomitant]
  3. TRAZODONE HCL [Suspect]
     Indication: INSOMNIA
     Route: 048
     Dates: start: 20110727, end: 20110813
  4. FOSAMAX [Concomitant]

REACTIONS (14)
  - FEELING ABNORMAL [None]
  - ABDOMINAL PAIN [None]
  - ADVERSE EVENT [None]
  - MUCOUS STOOLS [None]
  - LETHARGY [None]
  - HAEMATOCHEZIA [None]
  - FLATULENCE [None]
  - ABNORMAL DREAMS [None]
  - HYPERSENSITIVITY [None]
  - ANXIETY [None]
  - TEMPOROMANDIBULAR JOINT SYNDROME [None]
  - DIARRHOEA [None]
  - CONSTIPATION [None]
  - HEADACHE [None]
